FAERS Safety Report 4501844-8 (Version None)
Quarter: 2004Q4

REPORT INFORMATION
  Report Type: 
  Country: None (occurrence: None)
  Receive Date: 20041109
  Receipt Date: 20041028
  Transmission Date: 20050328
  Serious: Yes (Disabling, Other)
  Sender: FDA-Public Use
  Company Number: 2004085019

PATIENT
  Age: 79 Year
  Sex: Male

DRUGS (6)
  1. CITALOR (ATORVASTATIN) [Suspect]
     Indication: ILL-DEFINED DISORDER
     Dosage: 10 MG (10 MG, 1 IN 1 D), ORAL
     Route: 048
     Dates: start: 20040101
  2. OMEPRAZOLE [Concomitant]
  3. AMLODIPINE (AMLODIPINE) [Concomitant]
  4. ALPRAZOLAM [Concomitant]
  5. CLOPIDOGREL BISULFATE [Concomitant]
  6. BUFFERIN [Concomitant]

REACTIONS (3)
  - ABASIA [None]
  - ANGIOPLASTY [None]
  - ARTHROPATHY [None]
